FAERS Safety Report 9433789 (Version 1)
Quarter: 2013Q3

REPORT INFORMATION
  Report Type: Report from Study
  Country: US (occurrence: US)
  Receive Date: 20130731
  Receipt Date: 20130731
  Transmission Date: 20140515
  Serious: No
  Sender: FDA-Public Use
  Company Number: PHEH2013US015818

PATIENT
  Sex: Male
  Weight: 88.89 kg

DRUGS (2)
  1. TASIGNA [Suspect]
     Dosage: 1 DF, BID
     Route: 048
  2. TASIGNA [Suspect]
     Dosage: ONCE CAPSULE AT 8 AM AND ANOTHER AT 12 PM
     Route: 048
     Dates: start: 20130723

REACTIONS (1)
  - Incorrect drug administration duration [Unknown]
